FAERS Safety Report 9305142 (Version 9)
Quarter: 2014Q1

REPORT INFORMATION
  Report Type: Report from Study
  Country: US (occurrence: US)
  Receive Date: 20130523
  Receipt Date: 20140320
  Transmission Date: 20141002
  Serious: Yes (Hospitalization)
  Sender: FDA-Public Use
  Company Number: PHEH2013US011211

PATIENT
  Age: 91 Year
  Sex: Male

DRUGS (21)
  1. EXELON PATCH [Suspect]
     Indication: DEMENTIA ALZHEIMER^S TYPE
     Dosage: 4.6 MG, DAILY
     Route: 062
     Dates: start: 20130915
  2. EXELON PATCH [Suspect]
     Dosage: 9.5 MG, DAILY
     Route: 062
     Dates: start: 20131216
  3. EXELON PATCH [Suspect]
     Dosage: 4.6 MG, DAILY
     Route: 062
     Dates: start: 20140113
  4. EXELON PATCH [Suspect]
     Dosage: 9.5 MG, DAILY
     Route: 062
  5. LOVASTATIN [Concomitant]
     Indication: CORONARY ARTERY DISEASE
     Dosage: 40 MG, QD
  6. ASPIRIN [Concomitant]
     Dosage: 1 DF, QD
  7. LEVOTHYROXINE [Concomitant]
     Dosage: 1 DF, QD (0.075)
  8. LISINOPRIL [Concomitant]
     Indication: HYPERTENSION
     Dosage: 1 DF, QD
  9. LISINOPRIL [Concomitant]
     Indication: CARDIAC FAILURE CHRONIC
  10. B COMPLEX [Concomitant]
     Dosage: 1 DF, QD
  11. LEVOTHROID [Concomitant]
     Indication: HYPOTHYROIDISM
     Dosage: 75 MG, UNK
  12. CITALOPRAM [Concomitant]
     Indication: DEPRESSION
     Dosage: 10 MG, UNK
  13. CITALOPRAM [Concomitant]
     Indication: AGITATION
  14. HCTZ [Concomitant]
     Indication: CARDIAC FAILURE CHRONIC
     Dosage: 12.5 MG, UNK
  15. HYDROCHLOROTHIAZIDE [Concomitant]
     Dosage: 1 DF, QD
  16. VITAMIN E [Concomitant]
     Dosage: UNK UKN, UNK
  17. LEXAPRO [Concomitant]
     Dosage: 1 DF, QD
  18. CENTRUM SILVER [Concomitant]
     Dosage: UNK UKN, UNK
  19. VITAMIN B12 [Concomitant]
     Dosage: UNK UKN, UNK
  20. BABY ASPIRIN [Concomitant]
     Dosage: UNK UKN, UNK
  21. STRESSTABS WITH ZINC [Concomitant]
     Dosage: UNK UKN, UNK

REACTIONS (15)
  - Gallbladder disorder [Recovering/Resolving]
  - Concomitant disease aggravated [Not Recovered/Not Resolved]
  - Neuropathy peripheral [Not Recovered/Not Resolved]
  - Contusion [Not Recovered/Not Resolved]
  - Screaming [Recovered/Resolved]
  - Nightmare [Unknown]
  - Sleep terror [Unknown]
  - Amnesia [Not Recovered/Not Resolved]
  - Memory impairment [Not Recovered/Not Resolved]
  - Depression [Not Recovered/Not Resolved]
  - Headache [Not Recovered/Not Resolved]
  - Confusional state [Recovered/Resolved]
  - Fatigue [Recovered/Resolved]
  - Application site erythema [Not Recovered/Not Resolved]
  - Drug ineffective [Not Recovered/Not Resolved]
